FAERS Safety Report 8069451-0 (Version None)
Quarter: 2012Q1

REPORT INFORMATION
  Report Type: 
  Country: None (occurrence: None)
  Receive Date: 20120125
  Receipt Date: 20120118
  Transmission Date: 20120608
  Serious: Yes (Hospitalization)
  Sender: FDA-Public Use
  Company Number: JP-JNJFOC-20120108765

PATIENT

DRUGS (11)
  1. FENTANYL-100 [Suspect]
     Route: 062
  2. FENTANYL-100 [Suspect]
     Dosage: FENTANYL (MATRIX PATCH) 50 UG/HR + 25 UG/HR
     Route: 062
  3. TRAMADOL HYDROCHLORIDE [Suspect]
     Route: 041
  4. FENTANYL-100 [Suspect]
     Dosage: FENTANYL (MATRIX PATCH) 100 UG/HR + 50 UG/HR
     Route: 062
  5. FENTANYL-100 [Suspect]
     Route: 062
  6. FENTANYL CITRATE [Suspect]
     Indication: CANCER PAIN
     Route: 041
  7. FENTANYL-100 [Suspect]
     Indication: CANCER PAIN
     Dosage: 2 PATCHES OF FENTANYL (MATRIX PATCH) 100 UG/HR
     Route: 062
  8. FENTANYL CITRATE [Suspect]
     Route: 041
  9. TRAMADOL HYDROCHLORIDE [Suspect]
     Indication: CANCER PAIN
     Route: 041
  10. DECADRON [Suspect]
     Indication: CANCER PAIN
     Route: 041
  11. UNKNOWN MEDICATION [Suspect]
     Indication: CANCER PAIN
     Route: 065

REACTIONS (4)
  - CONVULSION [None]
  - NAUSEA [None]
  - LARGE INTESTINAL OBSTRUCTION [None]
  - BREAKTHROUGH PAIN [None]
